FAERS Safety Report 9550133 (Version 1)
Quarter: 2013Q3

REPORT INFORMATION
  Report Type: Spontaneous
  Country: US (occurrence: US)
  Receive Date: 20130924
  Receipt Date: 20130924
  Transmission Date: 20140515
  Serious: Yes (Hospitalization, Other)
  Sender: FDA-Public Use
  Company Number: US-RB-058574-13

PATIENT
  Age: 22 Year
  Sex: Female

DRUGS (2)
  1. SUBOXONE FILM [Suspect]
     Indication: DRUG DEPENDENCE
     Dosage: SUBOXONE FILM; TAKING 2 MG TO 4 MG DAILY ALTHOUGH WAS PRESCRIBED 6 MG
     Route: 060
     Dates: start: 2013, end: 201309
  2. SUBOXONE FILM [Suspect]
     Dosage: SUBOXONE FILM; RESTARTED AFTER SHE LEFT THE HOSPITAL; TAKING 2 - 4 MG/DAILY
     Route: 060
     Dates: start: 201309

REACTIONS (5)
  - Wrong technique in drug usage process [Not Recovered/Not Resolved]
  - Underdose [Not Recovered/Not Resolved]
  - Kidney infection [Recovering/Resolving]
  - Pain [Recovering/Resolving]
  - Drug withdrawal syndrome [Recovered/Resolved]
